FAERS Safety Report 17852010 (Version 1)
Quarter: 2020Q2

REPORT INFORMATION
  Report Type: Spontaneous
  Country: US (occurrence: US)
  Receive Date: 20200602
  Receipt Date: 20200602
  Transmission Date: 20200714
  Serious: No
  Sender: FDA-Public Use
  Company Number: US-JNJFOC-20200537056

PATIENT
  Age: 73 Year
  Sex: Female

DRUGS (5)
  1. DURAGESIC [Suspect]
     Active Substance: FENTANYL
     Route: 062
  2. DURAGESIC [Suspect]
     Active Substance: FENTANYL
     Route: 062
  3. DURAGESIC [Suspect]
     Active Substance: FENTANYL
     Indication: PRODUCT USED FOR UNKNOWN INDICATION
     Route: 062
  4. DURAGESIC [Suspect]
     Active Substance: FENTANYL
     Route: 062
  5. DURAGESIC [Suspect]
     Active Substance: FENTANYL
     Route: 062

REACTIONS (1)
  - Withdrawal syndrome [Not Recovered/Not Resolved]
